FAERS Safety Report 18457315 (Version 2)
Quarter: 2020Q4

REPORT INFORMATION
  Report Type: Spontaneous
  Country: IT (occurrence: IT)
  Receive Date: 20201030
  Receipt Date: 20201103
  Transmission Date: 20210114
  Serious: Yes (Hospitalization, Other)
  Sender: FDA-Public Use
  Company Number: IT-SA-2020SA303367

PATIENT

DRUGS (4)
  1. OXALIPLATIN. [Suspect]
     Active Substance: OXALIPLATIN
     Dosage: 120 MG/M2, ON DAY 1
     Dates: start: 201902, end: 201902
  2. OXALIPLATIN. [Suspect]
     Active Substance: OXALIPLATIN
     Indication: ADENOCARCINOMA GASTRIC
     Dosage: ON DAY 1
     Dates: start: 2018, end: 2018
  3. CAPECITABINE. [Suspect]
     Active Substance: CAPECITABINE
     Dosage: 825MG/MQ2 TWICE A DAY FOR 14 DAYS IN A 21-DAYS CYCLE
     Dates: start: 201902, end: 201902
  4. CAPECITABINE. [Suspect]
     Active Substance: CAPECITABINE
     Indication: ADENOCARCINOMA GASTRIC
     Dosage: 825MG/MQ2 TWICE A DAY FOR 14 DAYS IN A 21-DAYS CYCLE
     Dates: start: 2018, end: 2018

REACTIONS (16)
  - Thrombocytopenia [Recovered/Resolved]
  - Alanine aminotransferase increased [Recovering/Resolving]
  - Oedema peripheral [Unknown]
  - Blood lactate dehydrogenase increased [Recovered/Resolved]
  - Diarrhoea [Recovered/Resolved]
  - Hypoalbuminaemia [Recovering/Resolving]
  - Fatigue [Unknown]
  - Hepatotoxicity [Recovering/Resolving]
  - Hepatic necrosis [Recovering/Resolving]
  - Hepatic lesion [Recovering/Resolving]
  - Abdominal distension [Recovering/Resolving]
  - Pleural effusion [Recovering/Resolving]
  - Ascites [Recovering/Resolving]
  - Blood alkaline phosphatase increased [Recovered/Resolved]
  - Hepatic infarction [Recovering/Resolving]
  - Bilirubin conjugated increased [Recovered/Resolved]

NARRATIVE: CASE EVENT DATE: 201902
